FAERS Safety Report 8528395-8 (Version None)
Quarter: 2012Q3

REPORT INFORMATION
  Report Type: 
  Country: None (occurrence: None)
  Receive Date: 20120722
  Receipt Date: 20120716
  Transmission Date: 20120928
  Serious: Yes (Other)
  Sender: FDA-Public Use
  Company Number: PHHY2012JP060869

PATIENT
  Age: 10 Year
  Sex: Male

DRUGS (11)
  1. CORTICOSTEROID NOS [Concomitant]
  2. VINCRISTINE [Concomitant]
  3. DANAZOL [Concomitant]
  4. PREDNISOLONE [Suspect]
     Indication: EVANS SYNDROME
  5. IMMUNE GLOBULIN (HUMAN) [Concomitant]
  6. CYCLOSPORINE [Suspect]
     Indication: EVANS SYNDROME
  7. MYCOPHENOLATE MOFETIL [Concomitant]
  8. RITUXIMAB [Concomitant]
  9. MERCAPTOPURINE [Concomitant]
  10. DAPSONE [Concomitant]
  11. CEPHARANTHINE [Concomitant]

REACTIONS (10)
  - BODY HEIGHT BELOW NORMAL [None]
  - SPINAL COMPRESSION FRACTURE [None]
  - OSTEOPOROSIS [None]
  - LYMPHOPENIA [None]
  - HEADACHE [None]
  - CUSHINGOID [None]
  - MUSCULOSKELETAL STIFFNESS [None]
  - SKIN PAPILLOMA [None]
  - INSOMNIA [None]
  - ACNE [None]
